FAERS Safety Report 15962321 (Version 2)
Quarter: 2021Q3

REPORT INFORMATION
  Report Type: Report from Study
  Country: US (occurrence: US)
  Receive Date: 20190214
  Receipt Date: 20210929
  Transmission Date: 20211014
  Serious: No
  Sender: FDA-Public Use
  Company Number: PHEH2019US006498

PATIENT
  Sex: Male

DRUGS (1)
  1. COSENTYX [Suspect]
     Active Substance: SECUKINUMAB
     Indication: PSORIASIS
     Route: 065

REACTIONS (6)
  - Skin haemorrhage [Unknown]
  - Rash [Unknown]
  - Arthralgia [Unknown]
  - Product dose omission issue [Unknown]
  - Skin plaque [Unknown]
  - Psoriasis [Unknown]
